FAERS Safety Report 9441736 (Version 2)
Quarter: 2013Q4

REPORT INFORMATION
  Report Type: Spontaneous
  Country: JP (occurrence: JP)
  Receive Date: 20130806
  Receipt Date: 20131208
  Transmission Date: 20140711
  Serious: Yes (Hospitalization)
  Sender: FDA-Public Use
  Company Number: JP-AMGEN-JPNSP2013054726

PATIENT
  Age: 58 Year
  Sex: Female
  Weight: 63 kg

DRUGS (10)
  1. RANMARK [Suspect]
     Indication: METASTASES TO BONE
     Dosage: 120 MG, Q4WK
     Route: 058
     Dates: start: 20120522
  2. ZOMETA [Suspect]
     Indication: METASTASES TO BONE
     Dosage: QMO
     Route: 041
     Dates: start: 201001, end: 20120424
  3. CELECOX [Concomitant]
     Indication: BACK PAIN
     Dosage: UNKNOWN
     Route: 065
  4. METHYCOBAL [Concomitant]
     Indication: NEUROPATHY PERIPHERAL
     Dosage: UNKNOWN
     Route: 065
  5. CALCIUM LACTATE [Concomitant]
     Indication: OSTEOPOROSIS
     Dosage: UNKNOWN
     Route: 065
  6. ONEALFA [Concomitant]
     Indication: OSTEOPOROSIS
     Dosage: UNKNOWN
     Route: 065
  7. TAKEPRON OD [Concomitant]
     Indication: GASTROOESOPHAGEAL REFLUX DISEASE
     Dosage: UNKNOWN
     Route: 065
  8. ZOLPIDEM TARTRATE [Concomitant]
     Indication: INSOMNIA
     Dosage: UNKNOWN
     Route: 065
  9. MAGMITT [Concomitant]
     Indication: CONSTIPATION
     Dosage: UNKNOWN
     Route: 065
  10. OXYCONTIN [Concomitant]
     Indication: CANCER PAIN
     Dosage: UNKNOWN
     Route: 065

REACTIONS (1)
  - Atypical fracture [Recovering/Resolving]
